FAERS Safety Report 9613740 (Version 1)
Quarter: 2013Q4

REPORT INFORMATION
  Report Type: Spontaneous
  Country: CN (occurrence: CN)
  Receive Date: 20131010
  Receipt Date: 20131010
  Transmission Date: 20140711
  Serious: Yes (Hospitalization, Other)
  Sender: FDA-Public Use
  Company Number: CN-GILEAD-2013-0085241

PATIENT
  Age: 51 Year
  Sex: Male

DRUGS (1)
  1. HEPSERA [Suspect]
     Indication: HEPATIC CIRRHOSIS
     Dosage: 1TAB PER DAY
     Route: 048
     Dates: start: 20060101, end: 20070101

REACTIONS (3)
  - Fanconi syndrome acquired [Recovering/Resolving]
  - Renal injury [Unknown]
  - Osteoporosis [Unknown]
